FAERS Safety Report 5340491-5 (Version None)
Quarter: 2007Q2

REPORT INFORMATION
  Report Type: 
  Country: None (occurrence: None)
  Receive Date: 20070531
  Receipt Date: 20070521
  Transmission Date: 20071010
  Serious: Yes (Hospitalization)
  Sender: FDA-Public Use
  Company Number: FR-PFIZER INC-2007040647

PATIENT
  Age: 53 Year
  Sex: Male

DRUGS (1)
  1. LYRICA [Suspect]
     Route: 048
     Dates: start: 20070403, end: 20070403

REACTIONS (2)
  - PYREXIA [None]
  - RASH MACULAR [None]
